FAERS Safety Report 11999171 (Version 5)
Quarter: 2016Q4

REPORT INFORMATION
  Report Type: Report from Study
  Country: JP (occurrence: JP)
  Receive Date: 20160204
  Receipt Date: 20161216
  Transmission Date: 20170206
  Serious: Yes (Death, Hospitalization, Other)
  Sender: FDA-Public Use
  Company Number: JP-BRISTOL-MYERS SQUIBB COMPANY-BMS-2016-004340

PATIENT
  Age: 64 Year
  Sex: Female

DRUGS (2)
  1. NIVOLUMAB [Suspect]
     Active Substance: NIVOLUMAB
     Indication: NON-SMALL CELL LUNG CANCER
     Dosage: 195.3 MG, UNK
     Route: 041
     Dates: start: 20151228
  2. NIVOLUMAB [Suspect]
     Active Substance: NIVOLUMAB
     Indication: PRODUCT USED FOR UNKNOWN INDICATION
     Dosage: 195.3 MG, UNK
     Route: 041
     Dates: start: 20160201, end: 20160201

REACTIONS (6)
  - Pyrexia [Recovered/Resolved]
  - Hepatic function abnormal [Not Recovered/Not Resolved]
  - Malignant neoplasm progression [Fatal]
  - Pancreatitis acute [Recovered/Resolved]
  - Jaundice [Recovering/Resolving]
  - Faeces pale [Unknown]

NARRATIVE: CASE EVENT DATE: 20151230
